FAERS Safety Report 10092395 (Version 1)
Quarter: 2014Q2

REPORT INFORMATION
  Report Type: Spontaneous
  Country: US (occurrence: US)
  Receive Date: 20140421
  Receipt Date: 20140421
  Transmission Date: 20141212
  Serious: No
  Sender: FDA-Public Use
  Company Number: US-SANOFI-AVENTIS-2013SA050079

PATIENT
  Age: 52 Year
  Sex: Female
  Weight: 73.94 kg

DRUGS (3)
  1. ALLEGRA [Suspect]
     Indication: HYPERSENSITIVITY
     Dosage: PRODUCT STARTED ABOUT A MONTH AGO
     Route: 048
     Dates: start: 20130501, end: 20130501
  2. ALLEGRA [Suspect]
     Indication: HYPERSENSITIVITY
     Dates: start: 20130514
  3. AMLODIPINE BESILATE [Concomitant]
     Indication: HYPERTENSION

REACTIONS (4)
  - Gastrooesophageal reflux disease [Recovered/Resolved]
  - Dyspepsia [Recovered/Resolved]
  - Dry mouth [Recovered/Resolved]
  - Salivary hypersecretion [Recovered/Resolved]
